FAERS Safety Report 8583632-9 (Version None)
Quarter: 2012Q3

REPORT INFORMATION
  Report Type: 
  Country: None (occurrence: None)
  Receive Date: 20120809
  Receipt Date: 20120807
  Transmission Date: 20120928
  Serious: Yes (Other)
  Sender: FDA-Public Use
  Company Number: US-009507513-2012SP020784

PATIENT

DRUGS (16)
  1. ZITHROMAX [Concomitant]
     Indication: PRODUCT USED FOR UNKNOWN INDICATION
     Dosage: UNK UNK, UNKNOWN
     Route: 065
     Dates: start: 20120221, end: 20120225
  2. RIBAVIRIN [Suspect]
     Dosage: 600 MG, BID
     Route: 048
     Dates: start: 20111229, end: 20120118
  3. INVESTIGATIONAL DRUG (UNSPECIFIED) [Suspect]
     Dosage: 3 DF, QD
     Route: 048
     Dates: start: 20120119, end: 20120313
  4. CODEINE SULFATE [Concomitant]
     Indication: PRODUCT USED FOR UNKNOWN INDICATION
     Dosage: UPDATE:(17APR2012)
     Dates: start: 20120119, end: 20120218
  5. RANITIDINE [Concomitant]
     Indication: PRODUCT USED FOR UNKNOWN INDICATION
     Dosage: UPDATE:(17APR2012)
     Route: 065
  6. PEGINTERFERON ALFA-2A [Suspect]
     Dosage: 180 ?G, QW
     Route: 058
     Dates: start: 20120119, end: 20120309
  7. INVESTIGATIONAL DRUG (UNSPECIFIED) [Suspect]
     Dosage: 3 DF, QD
     Route: 048
     Dates: start: 20111229, end: 20120118
  8. ASPIRIN [Concomitant]
     Indication: PRODUCT USED FOR UNKNOWN INDICATION
     Dosage: UNK UNK, UNKNOWN
     Route: 065
     Dates: start: 20040101, end: 20120329
  9. SULINDAC [Concomitant]
     Indication: PRODUCT USED FOR UNKNOWN INDICATION
     Dosage: UNK UNK, UNKNOWN
     Route: 065
     Dates: start: 20111218, end: 20120327
  10. INVESTIGATIONAL DRUG (UNSPECIFIED) [Suspect]
     Dosage: 2 DF, QD
     Route: 048
     Dates: start: 20111229, end: 20120118
  11. INVESTIGATIONAL DRUG (UNSPECIFIED) [Suspect]
     Dosage: 2 DF, QD
     Route: 048
     Dates: start: 20120119, end: 20120313
  12. METOPROLOL TARTRATE [Concomitant]
     Indication: PRODUCT USED FOR UNKNOWN INDICATION
     Dosage: UNK UNK, UNKNOWN
     Route: 065
     Dates: start: 20040101
  13. RIBAVIRIN [Suspect]
     Dosage: 600 MG, BID
     Route: 048
     Dates: start: 20110119, end: 20120313
  14. PLACEBO [Suspect]
     Indication: HEPATITIS C
     Dosage: 1 DF, BID
     Route: 048
     Dates: start: 20111229, end: 20120118
  15. CELEXA [Concomitant]
     Indication: PRODUCT USED FOR UNKNOWN INDICATION
     Dosage: UNK UNK, UNKNOWN
     Route: 065
     Dates: start: 20120118
  16. TYLENOL [Concomitant]
     Indication: PRODUCT USED FOR UNKNOWN INDICATION
     Dosage: UNK UNK, UNKNOWN
     Route: 065
     Dates: start: 20120118

REACTIONS (2)
  - RASH [None]
  - SENSORIMOTOR DISORDER [None]
